FAERS Safety Report 5831837-X (Version None)
Quarter: 2008Q3

REPORT INFORMATION
  Report Type: 
  Country: None (occurrence: None)
  Receive Date: 20080731
  Receipt Date: 20080716
  Transmission Date: 20090109
  Serious: Yes (Hospitalization)
  Sender: FDA-Public Use
  Company Number: 2008AL008498

PATIENT
  Age: 60 Year
  Sex: Male

DRUGS (7)
  1. DIGOXIN [Suspect]
     Indication: CARDIAC DISORDER
     Dosage: 0.25MG, PO, DAILY
     Route: 048
     Dates: start: 20060519
  2. LISINOPRIL [Concomitant]
  3. XANAX [Concomitant]
  4. QUINIDINE HCL [Concomitant]
  5. FUROSEMIDE [Concomitant]
  6. MEXTIL [Concomitant]
  7. POTASSIUM CHLORIDE [Concomitant]

REACTIONS (3)
  - CARDIAC OUTPUT DECREASED [None]
  - CARDIOACTIVE DRUG LEVEL INCREASED [None]
  - DYSPNOEA [None]
